FAERS Safety Report 6368386-9 (Version None)
Quarter: 2009Q3

REPORT INFORMATION
  Report Type: 
  Country: None (occurrence: None)
  Receive Date: 20090922
  Receipt Date: 20090916
  Transmission Date: 20100115
  Serious: Yes (Other)
  Sender: FDA-Public Use
  Company Number: IE-ABBOTT-09P-229-0597753-00

PATIENT
  Age: 55 Year
  Sex: Male

DRUGS (4)
  1. KLACID [Suspect]
     Indication: MYCOPLASMA INFECTION
     Route: 048
  2. ALUPENT [Concomitant]
     Indication: DRUG USE FOR UNKNOWN INDICATION
  3. FLUCLOXACILLIN [Concomitant]
     Indication: DRUG USE FOR UNKNOWN INDICATION
  4. CHLORAMPHENICOL [Concomitant]
     Indication: DRUG USE FOR UNKNOWN INDICATION

REACTIONS (4)
  - ASTHENIA [None]
  - GAIT DISTURBANCE [None]
  - HEARING IMPAIRED [None]
  - SLEEP DISORDER [None]
